FAERS Safety Report 5467428-2 (Version None)
Quarter: 2007Q3

REPORT INFORMATION
  Report Type: 
  Country: None (occurrence: None)
  Receive Date: 20070925
  Receipt Date: 20070913
  Transmission Date: 20080115
  Serious: Yes (Other)
  Sender: FDA-Public Use
  Company Number: FR-PFIZER INC-2007077258

PATIENT
  Age: 21 Year
  Sex: Female

DRUGS (3)
  1. CYTOTEC [Suspect]
     Indication: OFF LABEL USE
     Dates: start: 20070305, end: 20070305
  2. MIFEGYNE [Suspect]
     Dates: start: 20070303, end: 20070303
  3. VOLTAREN [Concomitant]
     Route: 054
     Dates: start: 20070305, end: 20070305

REACTIONS (2)
  - INDUCED ABORTION FAILED [None]
  - OFF LABEL USE [None]
